FAERS Safety Report 23394761 (Version 1)
Quarter: 2024Q1

REPORT INFORMATION
  Report Type: Spontaneous
  Country: US (occurrence: US)
  Receive Date: 20240112
  Receipt Date: 20240112
  Transmission Date: 20240410
  Serious: Yes (Other)
  Sender: FDA-Public Use
  Company Number: US-BoehringerIngelheim-2024-BI-001562

PATIENT
  Sex: Female

DRUGS (2)
  1. SPIRIVA RESPIMAT [Suspect]
     Active Substance: TIOTROPIUM BROMIDE
     Indication: Chronic obstructive pulmonary disease
     Dosage: INHALATION SPRAY
  2. SPIRIVA HANDIHALER [Suspect]
     Active Substance: TIOTROPIUM BROMIDE MONOHYDRATE
     Indication: Chronic obstructive pulmonary disease
     Dates: start: 2008

REACTIONS (5)
  - Lung neoplasm malignant [Unknown]
  - Cardiac failure congestive [Unknown]
  - Bone cancer [Unknown]
  - Adrenal gland cancer [Unknown]
  - Muscular weakness [Unknown]
